FAERS Safety Report 8571020-0 (Version None)
Quarter: 2012Q3

REPORT INFORMATION
  Report Type: 
  Country: None (occurrence: None)
  Receive Date: 20120806
  Receipt Date: 20120725
  Transmission Date: 20120928
  Serious: No
  Sender: FDA-Public Use
  Company Number: US-009507513-1208USA001073

PATIENT

DRUGS (2)
  1. SINGULAIR [Suspect]
     Indication: HYPERSENSITIVITY
     Dosage: 5 MG, HS
     Route: 048
  2. ZYRTEC [Concomitant]

REACTIONS (4)
  - SNEEZING [None]
  - DYSPHONIA [None]
  - PRODUCT QUALITY ISSUE [None]
  - DRUG DOSE OMISSION [None]
